FAERS Safety Report 5426749-X (Version None)
Quarter: 2007Q3

REPORT INFORMATION
  Report Type: 
  Country: None (occurrence: None)
  Receive Date: 20070827
  Receipt Date: 20070815
  Transmission Date: 20080115
  Serious: Yes (Other)
  Sender: FDA-Public Use
  Company Number: US-PFIZER INC-2007067891

PATIENT
  Sex: Male

DRUGS (1)
  1. BEXTRA [Suspect]
     Indication: ARTHROPATHY
     Route: 048
     Dates: start: 20031001, end: 20040201

REACTIONS (3)
  - CEREBROVASCULAR ACCIDENT [None]
  - RASH [None]
  - RENAL IMPAIRMENT [None]
